FAERS Safety Report 6534179-2 (Version None)
Quarter: 2009Q4

REPORT INFORMATION
  Report Type: 
  Country: None (occurrence: None)
  Receive Date: 20091214
  Receipt Date: 20090224
  Transmission Date: 20100525
  Serious: Yes (Hospitalization)
  Sender: FDA-Public Use
  Company Number: 448990

PATIENT
  Age: 66 Year
  Sex: Female
  Weight: 70.3 kg

DRUGS (9)
  1. PEGASYS [Suspect]
     Indication: HEPATITIS C
     Dosage: 180 UG 1 PER WEEK SUBCUTANEOUS
     Route: 058
     Dates: start: 20060126, end: 20061228
  2. COPEGUS [Suspect]
     Indication: HEPATITIS C
     Dosage: 600 MG 2 PER DAY ORAL
     Route: 048
     Dates: start: 20060126, end: 20061228
  3. ZANTAC [Concomitant]
  4. PROCRIT [Concomitant]
  5. ELAVIL [Concomitant]
  6. FLOVENT [Concomitant]
  7. ALBUTEROL [Concomitant]
  8. IBUPROFEN [Concomitant]
  9. NEUPOGEN [Concomitant]

REACTIONS (17)
  - ALANINE AMINOTRANSFERASE INCREASED [None]
  - ANAEMIA [None]
  - ASPARTATE AMINOTRANSFERASE INCREASED [None]
  - BASEDOW'S DISEASE [None]
  - CHILLS [None]
  - DYSPNOEA [None]
  - FATIGUE [None]
  - FEELING ABNORMAL [None]
  - HAEMATOCRIT DECREASED [None]
  - HAEMOGLOBIN DECREASED [None]
  - HYPOTHYROIDISM [None]
  - INSOMNIA [None]
  - MYALGIA [None]
  - NO THERAPEUTIC RESPONSE [None]
  - PYREXIA [None]
  - WEIGHT DECREASED [None]
  - WHITE BLOOD CELL COUNT DECREASED [None]
